FAERS Safety Report 12622934 (Version 1)
Quarter: 2016Q3

REPORT INFORMATION
  Report Type: Report from Study
  Country: US (occurrence: US)
  Receive Date: 20160804
  Receipt Date: 20160804
  Transmission Date: 20161109
  Serious: Yes (Hospitalization, Other)
  Sender: FDA-Public Use
  Company Number: US-GILEAD-2016-0226104

PATIENT
  Age: 52 Year
  Sex: Female

DRUGS (8)
  1. AMBRISENTAN [Suspect]
     Active Substance: AMBRISENTAN
     Indication: PULMONARY ARTERIAL HYPERTENSION
     Dosage: 5 MG, QD
     Route: 065
     Dates: start: 20150625
  2. METOLAZONE. [Concomitant]
     Active Substance: METOLAZONE
  3. RESTORIL [Concomitant]
     Active Substance: TEMAZEPAM
  4. SOMA [Concomitant]
     Active Substance: CARISOPRODOL
  5. POTASSIUM [Concomitant]
     Active Substance: POTASSIUM
  6. BUMETANIDE. [Concomitant]
     Active Substance: BUMETANIDE
  7. ADEMPAS [Concomitant]
     Active Substance: RIOCIGUAT
  8. CYMBALTA [Concomitant]
     Active Substance: DULOXETINE HYDROCHLORIDE

REACTIONS (1)
  - Splenomegaly [Not Recovered/Not Resolved]

NARRATIVE: CASE EVENT DATE: 20160728
